FAERS Safety Report 24227758 (Version 1)
Quarter: 2024Q3

REPORT INFORMATION
  Report Type: Spontaneous
  Country: AU (occurrence: AU)
  Receive Date: 20240820
  Receipt Date: 20240820
  Transmission Date: 20241017
  Serious: Yes (Death)
  Sender: AMGEN
  Company Number: AU-AMGEN-AUSSP2024162612

PATIENT

DRUGS (6)
  1. PEGFILGRASTIM [Suspect]
     Active Substance: PEGFILGRASTIM
     Indication: Acute myeloid leukaemia
     Dosage: 6 MILLIGRAM, Q2WK, (EVERY 14 DAYS)
     Route: 065
  2. CYTARABINE [Suspect]
     Active Substance: CYTARABINE
     Indication: Acute myeloid leukaemia
     Dosage: 20 MILLIGRAM/SQ. METER, QD (ONCE DAILY)
     Route: 058
  3. THIOGUANINE [Suspect]
     Active Substance: THIOGUANINE
     Indication: Acute myeloid leukaemia
     Dosage: 40 MILLIGRAM/SQ. METER, QD, ONCE DAILY FOR 21 DAYS
     Route: 048
  4. POSACONAZOLE [Suspect]
     Active Substance: POSACONAZOLE
     Indication: Acute myeloid leukaemia
     Dosage: UNK
     Route: 065
  5. CIPROFLOXACIN [Suspect]
     Active Substance: CIPROFLOXACIN
     Indication: Acute myeloid leukaemia
     Route: 065
  6. AMOXICILLIN [Suspect]
     Active Substance: AMOXICILLIN
     Indication: Acute myeloid leukaemia
     Dosage: UNK
     Route: 065

REACTIONS (1)
  - Death [Fatal]
